FAERS Safety Report 8428118-7 (Version None)
Quarter: 2012Q2

REPORT INFORMATION
  Report Type: 
  Country: None (occurrence: None)
  Receive Date: 20120611
  Receipt Date: 20120529
  Transmission Date: 20120825
  Serious: Yes (Hospitalization, Other)
  Sender: FDA-Public Use
  Company Number: US-ROCHE-1073243

PATIENT
  Sex: Female

DRUGS (2)
  1. XOLAIR [Suspect]
     Dates: start: 20120525
  2. XOLAIR [Suspect]
     Indication: PRODUCT USED FOR UNKNOWN INDICATION
     Dates: start: 20120302

REACTIONS (8)
  - CHEST PAIN [None]
  - DYSPNOEA [None]
  - OXYGEN SATURATION DECREASED [None]
  - CHEST DISCOMFORT [None]
  - BLOOD PRESSURE INCREASED [None]
  - NECK PAIN [None]
  - WHITE BLOOD CELL COUNT INCREASED [None]
  - WHEEZING [None]
